FAERS Safety Report 4296064-9 (Version None)
Quarter: 2004Q1

REPORT INFORMATION
  Report Type: 
  Country: None (occurrence: None)
  Receive Date: 20040212
  Receipt Date: 20040127
  Transmission Date: 20041129
  Serious: Yes (Hospitalization)
  Sender: FDA-Public Use
  Company Number: 204372

PATIENT
  Age: 34 Year
  Sex: Female

DRUGS (10)
  1. HERCEPTIN [Suspect]
     Indication: BREAST CANCER
     Dosage: 380 MG, SINGLE, IV; 190 MG, 1/WK, IV
     Route: 042
     Dates: start: 20040107, end: 20040107
  2. HERCEPTIN [Suspect]
     Indication: BREAST CANCER
     Dosage: 380 MG, SINGLE, IV; 190 MG, 1/WK, IV
     Route: 042
     Dates: start: 20040114
  3. DOCETAXEL(DOCETAXEL) [Suspect]
     Indication: BREAST CANCER
     Dosage: 190 MG, Q3W, INTRAVENOUS
     Route: 042
     Dates: start: 20040108
  4. ONDANSETRON HCL [Concomitant]
  5. DOMPERIDONE (DOMEPERIDONE) [Concomitant]
  6. HYDROCORTISONE (NYDROCORTISONE) [Concomitant]
  7. CHLORPHENIRAMINE (CHLORPHENIRAMINE) [Concomitant]
  8. LORAZEPAM [Concomitant]
  9. AMOXYCILLIN (AMOXYCILLIN) [Concomitant]
  10. DEXAMETHSONE [Concomitant]

REACTIONS (6)
  - ALANINE AMINOTRANSFERASE INCREASED [None]
  - DIARRHOEA [None]
  - GAMMA-GLUTAMYLTRANSFERASE INCREASED [None]
  - HAEMOGLOBIN ABNORMAL [None]
  - NEUTROPENIA [None]
  - WHITE BLOOD CELL COUNT DECREASED [None]
